FAERS Safety Report 10052541 (Version 1)
Quarter: 2014Q2

REPORT INFORMATION
  Report Type: Report from Study
  Country: US (occurrence: US)
  Receive Date: 20140402
  Receipt Date: 20140402
  Transmission Date: 20141212
  Serious: Yes (Other)
  Sender: FDA-Public Use
  Company Number: US-ALEXION-A200901351

PATIENT
  Sex: Male

DRUGS (4)
  1. SOLIRIS [Suspect]
     Indication: PAROXYSMAL NOCTURNAL HAEMOGLOBINURIA
     Dosage: UNK
     Route: 042
  2. VIDAZA [Concomitant]
     Indication: MYELODYSPLASTIC SYNDROME
     Dosage: 5 DAYS A MONTH
  3. PROCRIT                            /00909301/ [Concomitant]
     Indication: PRODUCT USED FOR UNKNOWN INDICATION
     Dosage: UNK
  4. VITAMIN B12                        /00056201/ [Concomitant]
     Indication: SUPPLEMENTATION THERAPY
     Dosage: UNK

REACTIONS (3)
  - Myelodysplastic syndrome [Not Recovered/Not Resolved]
  - Transfusion [Not Recovered/Not Resolved]
  - Haemoglobin decreased [Unknown]
